FAERS Safety Report 21662502 (Version 1)
Quarter: 2022Q4

REPORT INFORMATION
  Report Type: Spontaneous
  Country: MY (occurrence: MY)
  Receive Date: 20221130
  Receipt Date: 20221130
  Transmission Date: 20230113
  Serious: Yes (Other)
  Sender: FDA-Public Use
  Company Number: MY-PFIZER INC-202201334904

PATIENT
  Age: 61 Year
  Sex: Male

DRUGS (2)
  1. CRIZOTINIB [Suspect]
     Active Substance: CRIZOTINIB
     Dosage: UNK
     Dates: start: 20170109, end: 20180427
  2. TENOFOVIR [Concomitant]
     Active Substance: TENOFOVIR
     Indication: Viral hepatitis carrier
     Dosage: UNK

REACTIONS (1)
  - Carcinoembryonic antigen increased [Unknown]
